FAERS Safety Report 21613937 (Version 3)
Quarter: 2022Q4

REPORT INFORMATION
  Report Type: Report from Study
  Country: US (occurrence: US)
  Receive Date: 20221118
  Receipt Date: 20221215
  Transmission Date: 20230113
  Serious: Yes (Hospitalization)
  Sender: FDA-Public Use
  Company Number: US-002147023-NVSC2022US257762

PATIENT
  Sex: Male

DRUGS (3)
  1. ENTRESTO [Suspect]
     Active Substance: SACUBITRIL\VALSARTAN
     Indication: Product used for unknown indication
     Dosage: UNK, FOR 30 DAYS, END OF MARCH TO END APRI
     Route: 048
     Dates: start: 202203, end: 202204
  2. LOSARTAN [Suspect]
     Active Substance: LOSARTAN
     Indication: Product used for unknown indication
     Dosage: UNK, TOOK FOR A FEW DAYS
     Route: 065
     Dates: start: 202203
  3. LOSARTAN [Suspect]
     Active Substance: LOSARTAN
     Dosage: UNK
     Route: 065
     Dates: start: 202204, end: 202211

REACTIONS (3)
  - Myocardial infarction [Unknown]
  - Cough [Unknown]
  - Contraindicated product administered [Unknown]
